FAERS Safety Report 10601900 (Version 1)
Quarter: 2014Q4

REPORT INFORMATION
  Report Type: Spontaneous
  Country: US (occurrence: US)
  Receive Date: 20141124
  Receipt Date: 20141124
  Transmission Date: 20150529
  Serious: Yes (Other)
  Sender: FDA-Public Use
  Company Number: US-ELI_LILLY_AND_COMPANY-US201411005366

PATIENT
  Age: 65 Year
  Sex: Female

DRUGS (4)
  1. NORMODYNE [Concomitant]
     Active Substance: LABETALOL HYDROCHLORIDE
  2. PROZAC [Suspect]
     Active Substance: FLUOXETINE HYDROCHLORIDE
     Indication: DEPRESSION
     Dosage: UNK, UNKNOWN
     Route: 065
     Dates: start: 1991, end: 1991
  3. PROTONIX [Concomitant]
     Active Substance: PANTOPRAZOLE SODIUM
  4. DIOVAN [Concomitant]
     Active Substance: VALSARTAN

REACTIONS (3)
  - Throat cancer [Unknown]
  - Hiatus hernia [Unknown]
  - Restless legs syndrome [Unknown]
